FAERS Safety Report 8810373 (Version 4)
Quarter: 2013Q2

REPORT INFORMATION
  Report Type: Report from Study
  Country: JP (occurrence: JP)
  Receive Date: 20120926
  Receipt Date: 20130410
  Transmission Date: 20140414
  Serious: Yes (Other)
  Sender: FDA-Public Use
  Company Number: JP-009507513-2012SP034182

PATIENT
  Age: 52 Year
  Sex: Male
  Weight: 64 kg

DRUGS (11)
  1. PEGINTRON [Suspect]
     Indication: CHRONIC HEPATITIS C
     Dosage: 1.5 MICROGRAM PER KILOGRAM, QW
     Route: 058
     Dates: start: 20120604
  2. REBETOL [Suspect]
     Indication: CHRONIC HEPATITIS C
     Dosage: 800 MG, QD
     Route: 048
     Dates: start: 20120604, end: 20120617
  3. REBETOL [Suspect]
     Dosage: 400 MG, QD
     Route: 048
     Dates: start: 20120618
  4. REBETOL [Suspect]
     Dosage: 200 MG, QD
     Route: 048
     Dates: start: 20120817, end: 20121004
  5. REBETOL [Suspect]
     Dosage: 400 MG, QD
     Route: 048
     Dates: start: 20121005
  6. TELAVIC [Suspect]
     Indication: CHRONIC HEPATITIS C
     Dosage: UNK
     Route: 048
     Dates: start: 20120604, end: 20120605
  7. TELAVIC [Suspect]
     Dosage: UNK
     Route: 048
     Dates: start: 20120606, end: 20120830
  8. TAKEPRON [Concomitant]
     Indication: PROPHYLAXIS
     Dosage: 15 MG, QD
     Route: 048
  9. TAKEPRON [Concomitant]
     Indication: GASTROOESOPHAGEAL REFLUX DISEASE
  10. LOXONIN [Concomitant]
     Indication: HEADACHE
     Dosage: 60 MG, QD
     Route: 048
  11. LOXONIN [Concomitant]
     Dosage: 60 MG/DAY AS NEEDED
     Route: 048

REACTIONS (2)
  - Hyperuricaemia [Recovered/Resolved]
  - Renal impairment [Recovered/Resolved]
